FAERS Safety Report 7718087-7 (Version None)
Quarter: 2011Q3

REPORT INFORMATION
  Report Type: 
  Country: None (occurrence: None)
  Receive Date: 20110830
  Receipt Date: 20110824
  Transmission Date: 20111222
  Serious: Yes (Hospitalization, Other)
  Sender: FDA-Public Use
  Company Number: US-ASTRAZENECA-2009SE08932

PATIENT
  Age: 49 Year
  Sex: Female
  Weight: 86.2 kg

DRUGS (13)
  1. SEROQUEL [Suspect]
     Indication: SLEEP DISORDER
     Route: 048
     Dates: start: 20020101
  2. SIMAVASTATIN [Concomitant]
     Indication: BLOOD CHOLESTEROL DECREASED
     Route: 048
     Dates: start: 20040101
  3. METFORMIN HYDROCHLORIDE [Concomitant]
     Indication: DIABETES MELLITUS
     Route: 048
     Dates: start: 20040101
  4. LOSARTAN [Concomitant]
     Indication: HYPERTENSION
     Route: 048
     Dates: start: 20040101
  5. SYSTANE [Concomitant]
     Indication: EYE DISORDER
     Route: 050
     Dates: start: 20040101
  6. NICOTINE [Concomitant]
     Dates: start: 20080905
  7. SEROQUEL [Suspect]
     Route: 048
     Dates: start: 20041201
  8. PAROXETINE HCL [Concomitant]
     Indication: AFFECTIVE DISORDER
     Route: 048
     Dates: start: 20000101
  9. GLIPIZIDE [Concomitant]
     Indication: DIABETES MELLITUS
     Route: 048
     Dates: start: 20040101
  10. LISINOPRIL [Concomitant]
     Dates: start: 20080905
  11. LYRICA [Concomitant]
     Indication: PAIN
     Route: 048
     Dates: start: 20040101
  12. VENTOLIN HFA [Concomitant]
     Indication: DYSPNOEA
     Dosage: TID
     Route: 048
     Dates: start: 20100101
  13. AMLODIPINE [Concomitant]
     Indication: PAIN
     Route: 048
     Dates: start: 20040101

REACTIONS (12)
  - HYPOAESTHESIA [None]
  - TYPE 1 DIABETES MELLITUS [None]
  - INSOMNIA [None]
  - DRUG DOSE OMISSION [None]
  - LIMB OPERATION [None]
  - ROAD TRAFFIC ACCIDENT [None]
  - GAIT DISTURBANCE [None]
  - PNEUMONIA [None]
  - SURGERY [None]
  - OFF LABEL USE [None]
  - EPISTAXIS [None]
  - DIABETES MELLITUS [None]
